FAERS Safety Report 9215381 (Version 1)
Quarter: 2013Q2

REPORT INFORMATION
  Report Type: Spontaneous
  Country: US (occurrence: US)
  Receive Date: 20130405
  Receipt Date: 20130405
  Transmission Date: 20140414
  Serious: Yes (Hospitalization)
  Sender: FDA-Public Use
  Company Number: US-ABBOTT-13P-163-1069802-00

PATIENT
  Sex: Male
  Weight: 81.72 kg

DRUGS (1)
  1. HUMIRA [Suspect]
     Indication: PSORIASIS
     Dosage: LONG TIME

REACTIONS (3)
  - Meniscus injury [Recovered/Resolved with Sequelae]
  - Ligament rupture [Recovering/Resolving]
  - Muscle injury [Recovering/Resolving]
